FAERS Safety Report 5049577-6 (Version None)
Quarter: 2006Q3

REPORT INFORMATION
  Report Type: 
  Country: None (occurrence: None)
  Receive Date: 20060712
  Receipt Date: 20060127
  Transmission Date: 20061208
  Serious: Yes (Hospitalization)
  Sender: FDA-Public Use
  Company Number: BE-BRISTOL-MYERS SQUIBB COMPANY-13266770

PATIENT
  Age: 72 Year
  Sex: Male

DRUGS (8)
  1. ERBITUX [Suspect]
     Indication: NEOPLASM MALIGNANT
     Dosage: MOST RECENT INFUSION 17-JAN-05. DELAYED.
     Route: 041
     Dates: start: 20051026
  2. GEFITINIB [Suspect]
     Indication: NEOPLASM MALIGNANT
     Route: 048
     Dates: start: 20051026
  3. L-THYROXINE [Concomitant]
  4. BISOPROLOL FUMARATE [Concomitant]
  5. MINOCYCLINE HCL [Concomitant]
  6. ZYRTEC [Concomitant]
  7. FUCIDINE CREAM [Concomitant]
  8. TOBRADEX [Concomitant]

REACTIONS (4)
  - FATIGUE [None]
  - GENERAL PHYSICAL HEALTH DETERIORATION [None]
  - RASH [None]
  - STAPHYLOCOCCAL INFECTION [None]
